FAERS Safety Report 5525239-3 (Version None)
Quarter: 2007Q4

REPORT INFORMATION
  Report Type: 
  Country: None (occurrence: None)
  Receive Date: 20071119
  Receipt Date: 20071119
  Transmission Date: 20080405
  Serious: Yes (Life-Threatening, Hospitalization, Other)
  Sender: FDA-Public Use
  Company Number: None

PATIENT
  Age: 39 Year
  Sex: Female
  Weight: 81.6475 kg

DRUGS (4)
  1. LEXAPRO [Suspect]
     Indication: ANXIETY
     Dosage: ONE TAB DAILY PO
     Route: 048
     Dates: start: 20070301, end: 20071001
  2. LEXAPRO [Suspect]
     Indication: DEPRESSION
     Dosage: ONE TAB DAILY PO
     Route: 048
     Dates: start: 20070301, end: 20071001
  3. LEXAPRO [Suspect]
     Indication: STRESS
     Dosage: ONE TAB DAILY PO
     Route: 048
     Dates: start: 20070301, end: 20071001
  4. TOPROL-XL [Suspect]
     Indication: HYPERTENSION
     Dosage: ONE TAB DAILT PO
     Route: 048
     Dates: start: 20070101, end: 20070712

REACTIONS (25)
  - AGGRESSION [None]
  - AGITATION [None]
  - ALOPECIA [None]
  - AMNESIA [None]
  - ANXIETY [None]
  - BACK INJURY [None]
  - CHILLS [None]
  - CONFUSIONAL STATE [None]
  - DEPRESSION [None]
  - DRUG INTERACTION [None]
  - HYPERHIDROSIS [None]
  - HYPOGLYCAEMIA [None]
  - IMPAIRED DRIVING ABILITY [None]
  - IMPAIRED WORK ABILITY [None]
  - INJURY [None]
  - LOSS OF CONSCIOUSNESS [None]
  - MALNUTRITION [None]
  - NAUSEA [None]
  - OVERDOSE [None]
  - ROAD TRAFFIC ACCIDENT [None]
  - SYNCOPE [None]
  - TREMOR [None]
  - UNRESPONSIVE TO STIMULI [None]
  - VOMITING [None]
  - WITHDRAWAL SYNDROME [None]
